FAERS Safety Report 9220561 (Version 1)
Quarter: 2013Q2

REPORT INFORMATION
  Report Type: Spontaneous
  Country: US (occurrence: US)
  Receive Date: 20130409
  Receipt Date: 20130409
  Transmission Date: 20140414
  Serious: No
  Sender: FDA-Public Use
  Company Number: US-009507513-1304USA002614

PATIENT
  Age: 48 Year
  Sex: Female
  Weight: 86.17 kg

DRUGS (3)
  1. JANUMET [Suspect]
     Indication: DIABETES MELLITUS
     Dosage: 50MG/1000MG, TWO TIMES A DAY
     Route: 048
  2. LYRICA [Suspect]
     Indication: FIBROMYALGIA
     Dosage: 50 MG, QID
     Dates: start: 201203
  3. LYRICA [Suspect]
     Dosage: 75 MG, QID

REACTIONS (3)
  - Gait disturbance [Unknown]
  - Blood glucose increased [Unknown]
  - Back pain [Unknown]
